FAERS Safety Report 19181965 (Version 1)
Quarter: 2021Q2

REPORT INFORMATION
  Report Type: Report from Study
  Country: DO (occurrence: DO)
  Receive Date: 20210426
  Receipt Date: 20210426
  Transmission Date: 20210717
  Serious: Yes (Other)
  Sender: FDA-Public Use
  Company Number: NVSC2021DO089481

PATIENT
  Sex: Male

DRUGS (2)
  1. VYMADA [Suspect]
     Active Substance: SACUBITRIL\VALSARTAN
     Indication: PRODUCT USED FOR UNKNOWN INDICATION
     Dosage: 50 MG
     Route: 065
  2. VYMADA [Suspect]
     Active Substance: SACUBITRIL\VALSARTAN
     Dosage: 100 MG, QD (50 MG IN THE MORNING AND 50 MG AT NIGHT)
     Route: 065

REACTIONS (3)
  - Wrong technique in product usage process [Unknown]
  - Plasma cell myeloma [Unknown]
  - Cardiac disorder [Unknown]
